FAERS Safety Report 8879161 (Version 1)
Quarter: 2012Q4

REPORT INFORMATION
  Report Type: Spontaneous
  Country: US (occurrence: None)
  Receive Date: 20121026
  Receipt Date: 20121026
  Transmission Date: 20130627
  Serious: Yes (Hospitalization, Other)
  Sender: FDA-Public Use
  Company Number: None

PATIENT
  Age: 33 Year
  Sex: Female
  Weight: 50.8 kg

DRUGS (4)
  1. VENLAFAXINE HYDROCHLORIDE [Suspect]
     Indication: MAJOR DEPRESSION
     Route: 048
  2. VENLAFAXINE HYDROCHLORIDE [Suspect]
     Indication: ANXIETY
     Route: 048
  3. VENLAFAXINE HCL [Suspect]
     Indication: MAJOR DEPRESSION
     Route: 048
  4. VENLAFAXINE HCL [Suspect]
     Indication: ANXIETY
     Route: 048

REACTIONS (12)
  - Myalgia [None]
  - Hyperhidrosis [None]
  - Hostility [None]
  - Anger [None]
  - Crying [None]
  - Feeling abnormal [None]
  - Acne cystic [None]
  - Pruritus [None]
  - Dry skin [None]
  - Fear [None]
  - Product substitution issue [None]
  - Asthenia [None]
